FAERS Safety Report 13694230 (Version 1)
Quarter: 2017Q2

REPORT INFORMATION
  Report Type: Spontaneous
  Country: BE (occurrence: BE)
  Receive Date: 20170627
  Receipt Date: 20170627
  Transmission Date: 20170830
  Serious: Yes (Life-Threatening, Hospitalization, Other)
  Sender: FDA-Public Use
  Company Number: BE-BAYER-2017-116750

PATIENT
  Age: 30 Year
  Sex: Female
  Weight: 75 kg

DRUGS (1)
  1. MIRENA [Suspect]
     Active Substance: LEVONORGESTREL
     Indication: CONTRACEPTION
     Dosage: 20 MCG/24HR, CONT
     Route: 015
     Dates: start: 20061101, end: 20161101

REACTIONS (12)
  - Urinary tract infection [Recovering/Resolving]
  - Tachycardia [Recovering/Resolving]
  - Acne [Recovering/Resolving]
  - Loss of libido [Recovering/Resolving]
  - Paraesthesia [Recovering/Resolving]
  - Migraine [Recovered/Resolved]
  - Depression [Recovered/Resolved]
  - Breast pain [Recovered/Resolved]
  - Constipation [Recovered/Resolved]
  - Anxiety [Recovering/Resolving]
  - Back pain [Recovered/Resolved]
  - Dyspepsia [Recovering/Resolving]

NARRATIVE: CASE EVENT DATE: 20061101
